FAERS Safety Report 12829109 (Version 1)
Quarter: 2016Q4

REPORT INFORMATION
  Report Type: Spontaneous
  Country: US (occurrence: US)
  Receive Date: 20161007
  Receipt Date: 20161007
  Transmission Date: 20170207
  Serious: No
  Sender: FDA-Public Use
  Company Number: US-SA-2016SA046832

PATIENT
  Age: 59 Year
  Sex: Female
  Weight: 50.8 kg

DRUGS (8)
  1. AUBAGIO [Suspect]
     Active Substance: TERIFLUNOMIDE
     Indication: MULTIPLE SCLEROSIS
     Route: 048
     Dates: start: 201603, end: 201605
  2. AUBAGIO [Suspect]
     Active Substance: TERIFLUNOMIDE
     Indication: MULTIPLE SCLEROSIS
     Route: 048
     Dates: start: 201606, end: 201608
  3. CALCIUM [Concomitant]
     Active Substance: CALCIUM
  4. VIIBRYD [Concomitant]
     Active Substance: VILAZODONE HYDROCHLORIDE
  5. VITAMIN D [Concomitant]
     Active Substance: CHOLECALCIFEROL
  6. BIOTIN [Concomitant]
     Active Substance: BIOTIN
  7. AUBAGIO [Suspect]
     Active Substance: TERIFLUNOMIDE
     Indication: MULTIPLE SCLEROSIS
     Route: 048
     Dates: start: 201606, end: 201608
  8. BACLOFEN. [Concomitant]
     Active Substance: BACLOFEN

REACTIONS (6)
  - White blood cell count increased [Unknown]
  - Paraesthesia [Unknown]
  - Diarrhoea [Unknown]
  - Alopecia [Unknown]
  - Hypoaesthesia [Unknown]
  - Neuropathy peripheral [Unknown]

NARRATIVE: CASE EVENT DATE: 201603
